FAERS Safety Report 7288759-X (Version None)
Quarter: 2011Q1

REPORT INFORMATION
  Report Type: 
  Country: None (occurrence: None)
  Receive Date: 20110211
  Receipt Date: 20110208
  Transmission Date: 20110831
  Serious: Yes (Death)
  Sender: FDA-Public Use
  Company Number: PHHY2011CA05551

PATIENT
  Sex: Male

DRUGS (2)
  1. CLOZARIL [Suspect]
     Dosage: 100 MG DAILY
     Dates: start: 20101231, end: 20110121
  2. CLOZARIL [Suspect]
     Indication: SCHIZOPHRENIA
     Dosage: 25 MG
     Dates: start: 20101229, end: 20110121

REACTIONS (2)
  - DEATH [None]
  - DIARRHOEA [None]
